FAERS Safety Report 19645813 (Version 2)
Quarter: 2023Q4

REPORT INFORMATION
  Report Type: Spontaneous
  Country: CA (occurrence: None)
  Receive Date: 20210802
  Receipt Date: 20231110
  Transmission Date: 20240110
  Serious: Yes (Other)
  Sender: FDA-Public Use
  Company Number: CA-ROCHE-2879926

PATIENT
  Age: 70 Year
  Sex: Female

DRUGS (23)
  1. RITUXIMAB [Suspect]
     Active Substance: RITUXIMAB
     Indication: Rheumatoid arthritis
     Route: 041
  2. RITUXIMAB [Suspect]
     Active Substance: RITUXIMAB
     Indication: DNA antibody negative
  3. RITUXIMAB [Suspect]
     Active Substance: RITUXIMAB
     Indication: Antinuclear antibody positive
  4. RITUXIMAB [Suspect]
     Active Substance: RITUXIMAB
     Indication: Antinuclear antibody negative
  5. RITUXIMAB [Suspect]
     Active Substance: RITUXIMAB
     Indication: Rheumatoid arthritis
     Route: 065
  6. RITUXIMAB [Suspect]
     Active Substance: RITUXIMAB
     Indication: DNA antibody negative
  7. RITUXIMAB [Suspect]
     Active Substance: RITUXIMAB
     Indication: Antinuclear antibody positive
  8. RITUXIMAB [Suspect]
     Active Substance: RITUXIMAB
     Indication: Antinuclear antibody negative
  9. CELEBREX [Suspect]
     Active Substance: CELECOXIB
     Indication: Product used for unknown indication
     Route: 065
  10. ASPIRIN [Concomitant]
     Active Substance: ASPIRIN
     Route: 065
  11. AMLODIPINE BESYLATE [Concomitant]
     Active Substance: AMLODIPINE BESYLATE
     Route: 065
  12. ATENOLOL [Concomitant]
     Active Substance: ATENOLOL
     Route: 065
  13. HYDROCHLOROTHIAZIDE [Concomitant]
     Active Substance: HYDROCHLOROTHIAZIDE
     Route: 065
  14. KENALOG [Concomitant]
     Active Substance: TRIAMCINOLONE ACETONIDE
  15. LEVOTHYROXINE SODIUM [Concomitant]
     Active Substance: LEVOTHYROXINE SODIUM
     Route: 065
  16. LIDOCAINE [Concomitant]
     Active Substance: LIDOCAINE
     Route: 061
  17. METHOTREXATE [Concomitant]
     Active Substance: METHOTREXATE
     Route: 065
  18. HYDROCHLOROTHIAZIDE\TELMISARTAN [Concomitant]
     Active Substance: HYDROCHLOROTHIAZIDE\TELMISARTAN
     Route: 065
  19. ROSUVASTATIN CALCIUM [Concomitant]
     Active Substance: ROSUVASTATIN CALCIUM
     Route: 065
  20. SYNTHROID [Concomitant]
     Active Substance: LEVOTHYROXINE SODIUM
  21. ACETAMINOPHEN\TRAMADOL [Concomitant]
     Active Substance: ACETAMINOPHEN\TRAMADOL
  22. TYLENOL [Concomitant]
     Active Substance: ACETAMINOPHEN
  23. VITAMIN D3 [Concomitant]
     Active Substance: CHOLECALCIFEROL
     Route: 048

REACTIONS (2)
  - Arthropathy [Unknown]
  - Drug effect less than expected [Unknown]
